FAERS Safety Report 8832642 (Version 1)
Quarter: 2012Q4

REPORT INFORMATION
  Report Type: 
  Country: US (occurrence: US)
  Receive Date: 20121010
  Receipt Date: 20121010
  Transmission Date: 20130627
  Serious: No
  Sender: FDA-Public Use
  Company Number: US-PFIZER INC-2012249494

PATIENT
  Age: 39 Year
  Sex: Female
  Weight: 58.96 kg

DRUGS (1)
  1. GEODON [Suspect]
     Indication: MENTAL DISORDER
     Dosage: 60 mg, 2x/day
     Dates: end: 20121004

REACTIONS (1)
  - Chest pain [Not Recovered/Not Resolved]
